FAERS Safety Report 9126777 (Version 2)
Quarter: 2013Q1

REPORT INFORMATION
  Report Type: Spontaneous
  Country: ZA (occurrence: ZA)
  Receive Date: 20130228
  Receipt Date: 20130306
  Transmission Date: 20140127
  Serious: Yes (Hospitalization, Other)
  Sender: FDA-Public Use
  Company Number: ZA-BAYER-2012-103686

PATIENT
  Age: 46 Year
  Sex: Female

DRUGS (1)
  1. YAZ [Suspect]
     Indication: CONTRACEPTION
     Dosage: UNK
     Route: 048
     Dates: start: 2010

REACTIONS (16)
  - Pulmonary embolism [Recovered/Resolved]
  - Presyncope [Recovered/Resolved]
  - Dyspnoea [Recovered/Resolved]
  - Bronchitis [Recovered/Resolved]
  - Pleuritic pain [Recovered/Resolved]
  - Fatigue [Recovered/Resolved]
  - Panic attack [None]
  - Cough [Recovered/Resolved]
  - Local swelling [None]
  - Contusion [None]
  - Ovarian cyst [None]
  - Pain [None]
  - Pain in extremity [None]
  - Local swelling [None]
  - Pleurisy [Recovered/Resolved]
  - Haemorrhage [None]
